FAERS Safety Report 8488883-X (Version None)
Quarter: 2012Q3

REPORT INFORMATION
  Report Type: 
  Country: None (occurrence: None)
  Receive Date: 20120705
  Receipt Date: 20120629
  Transmission Date: 20120928
  Serious: Yes (Other)
  Sender: FDA-Public Use
  Company Number: US-BAYER-2012-053842

PATIENT
  Age: 70 Year
  Sex: Female
  Weight: 60 kg

DRUGS (8)
  1. NEXAVAR [Suspect]
     Indication: HEPATIC NEOPLASM MALIGNANT
     Dosage: 200 MG, BID
     Dates: start: 20111001
  2. NEXAVAR [Suspect]
     Indication: METASTASES TO LUNG
  3. PREVACID [Concomitant]
     Dosage: 30 MG, UNK
  4. AMBIEN [Concomitant]
     Dosage: 10 MG, HS
  5. SYNTHROID [Concomitant]
     Dosage: 88 MCG, UNK
  6. LORTAB [Concomitant]
  7. CALCITRIOL [Concomitant]
     Dosage: 0.25 MCG BID
  8. PROCHLORPERAZINE [Concomitant]
     Dosage: UNK MG, UNK

REACTIONS (5)
  - PULMONARY EMBOLISM [None]
  - DYSPNOEA [None]
  - INJECTION SITE MASS [None]
  - COUGH [None]
  - VENOUS THROMBOSIS [None]
